FAERS Safety Report 21519760 (Version 3)
Quarter: 2022Q4

REPORT INFORMATION
  Report Type: Spontaneous
  Country: JP (occurrence: JP)
  Receive Date: 20221028
  Receipt Date: 20221213
  Transmission Date: 20230113
  Serious: Yes (Other)
  Sender: FDA-Public Use
  Company Number: JP-UNITED THERAPEUTICS-UNT-2022-022893

PATIENT
  Age: 3 Year
  Sex: Male
  Weight: 16.7 kg

DRUGS (6)
  1. UNITUXIN [Suspect]
     Active Substance: DINUTUXIMAB
     Indication: Neuroblastoma
     Dosage: 17.5 MG/M2, CYCLICAL [CYCLE 1]
     Route: 041
     Dates: start: 20220913, end: 20220916
  2. UNITUXIN [Suspect]
     Active Substance: DINUTUXIMAB
     Dosage: UNK, CYCLICAL [CYCLE 2]
     Route: 041
     Dates: start: 20221018, end: 202210
  3. FILGRASTIM [Concomitant]
     Active Substance: FILGRASTIM
     Indication: Neuroblastoma
     Dosage: UNK [CYCLE1]
     Route: 065
     Dates: start: 20220910, end: 20220923
  4. TECELEUKIN [Concomitant]
     Active Substance: TECELEUKIN
     Indication: Neuroblastoma
     Dosage: UNK (CYCLE 2)
     Route: 065
     Dates: start: 20221011, end: 202210
  5. HYDROXYZINE [Concomitant]
     Active Substance: HYDROXYZINE HYDROCHLORIDE
     Indication: Prophylaxis
     Dosage: UNK
     Route: 065
     Dates: start: 20220913, end: 20220916
  6. ACETAMINOPHEN [Concomitant]
     Active Substance: ACETAMINOPHEN
     Indication: Prophylaxis
     Dosage: UNK
     Route: 065
     Dates: start: 20220913, end: 20220917

REACTIONS (10)
  - Myelosuppression [Unknown]
  - Abdominal pain [Recovering/Resolving]
  - Hypoalbuminaemia [Recovered/Resolved]
  - Anaemia [Recovering/Resolving]
  - Oedema [Recovering/Resolving]
  - Weight increased [Recovering/Resolving]
  - Hypoglycaemia [Recovered/Resolved]
  - Antithrombin III decreased [Recovering/Resolving]
  - Pyrexia [Unknown]
  - Pyrexia [Unknown]

NARRATIVE: CASE EVENT DATE: 20220901
